FAERS Safety Report 5232997-4 (Version None)
Quarter: 2007Q1

REPORT INFORMATION
  Report Type: 
  Country: None (occurrence: None)
  Receive Date: 20070207
  Receipt Date: 20070125
  Transmission Date: 20070707
  Serious: Yes (Hospitalization)
  Sender: FDA-Public Use
  Company Number: US-SHR-US-2006-038080

PATIENT
  Age: 72 Year
  Sex: Male

DRUGS (1)
  1. BETASERON [Suspect]
     Dosage: 8 MIU, EVERY 2D
     Route: 058
     Dates: start: 20060505

REACTIONS (4)
  - DEHYDRATION [None]
  - HEART RATE INCREASED [None]
  - PNEUMONIA [None]
  - SINUS DISORDER [None]
